FAERS Safety Report 4615954-8 (Version None)
Quarter: 2005Q1

REPORT INFORMATION
  Report Type: 
  Country: None (occurrence: None)
  Receive Date: 20050318
  Receipt Date: 20050307
  Transmission Date: 20050727
  Serious: Yes (Hospitalization)
  Sender: FDA-Public Use
  Company Number: 05H-087-0293877-00

PATIENT
  Age: 13 Year
  Sex: Male

DRUGS (6)
  1. PENTAZOCINE LACTATE [Suspect]
     Dosage: 2/3 AMPULE, DAILY, INTRAVENOUS
     Route: 042
     Dates: start: 20050201
  2. MIDAZOLAM HYDROCHLORIDE [Suspect]
     Dosage: 4 MG, DAY, INTRAVENOUS
     Route: 042
     Dates: start: 20050201
  3. HYDROXYZINE HYDROCHLORIDE [Suspect]
     Dosage: 25 MG, DAY, INTRAVENOUS
     Route: 042
     Dates: start: 20050201
  4. KETAMINE HCL [Suspect]
     Dosage: 2 ML, DAY, INTRAVENOUS
     Route: 042
     Dates: start: 20050201
  5. LIDOCAINE [Suspect]
     Dosage: TOPICAL
     Route: 061
     Dates: start: 20050201
  6. ATROPINE SULFATE [Suspect]
     Dosage: INTRAVENOUS
     Route: 042
     Dates: start: 20050201

REACTIONS (3)
  - PHARYNGEAL OEDEMA [None]
  - POST PROCEDURAL COMPLICATION [None]
  - RESPIRATORY FAILURE [None]
